FAERS Safety Report 7023437-3 (Version None)
Quarter: 2010Q3

REPORT INFORMATION
  Report Type: 
  Country: None (occurrence: None)
  Receive Date: 20100930
  Receipt Date: 20100920
  Transmission Date: 20110219
  Serious: Yes (Other)
  Sender: FDA-Public Use
  Company Number: US-WATSON-2010-12515

PATIENT
  Sex: Male
  Weight: 95.238 kg

DRUGS (10)
  1. FENTANYL-100 [Suspect]
     Indication: BACK PAIN
     Dosage: 1 PATCH Q 48 HRS
     Route: 062
     Dates: start: 20100910
  2. FENTANYL-100 [Suspect]
     Indication: INTERVERTEBRAL DISC PROTRUSION
     Dosage: 1 PATCH Q 48 HRS
     Route: 062
     Dates: start: 20100801
  3. FENTANYL CITRATE [Suspect]
     Indication: BACK PAIN
     Dosage: UNK
     Route: 062
     Dates: start: 20080101
  4. FENTANYL CITRATE [Suspect]
     Indication: INTERVERTEBRAL DISC PROTRUSION
  5. ADVAIR DISKUS 100/50 [Concomitant]
     Indication: ASTHMA
     Dosage: UNK
     Route: 055
  6. ALBUTEROL [Concomitant]
     Indication: ASTHMA
     Dosage: PRN AS RESCUE INHALER
     Route: 055
  7. NIFEDICAL [Concomitant]
     Indication: CARDIAC MURMUR
     Dosage: UNK
     Route: 065
  8. NIFEDICAL [Concomitant]
     Indication: BLOOD PRESSURE
  9. ATENOLOL [Concomitant]
     Indication: BLOOD PRESSURE
     Dosage: UNK
     Route: 065
  10. CLONIDINE [Concomitant]
     Indication: BLOOD PRESSURE
     Dosage: UNK
     Route: 065

REACTIONS (8)
  - AORTIC ANEURYSM [None]
  - APPLICATION SITE ERYTHEMA [None]
  - APPLICATION SITE HYPERSENSITIVITY [None]
  - APPLICATION SITE IRRITATION [None]
  - APPLICATION SITE PRURITUS [None]
  - CARDIAC MURMUR [None]
  - DRUG INEFFECTIVE [None]
  - INFECTIOUS MONONUCLEOSIS [None]
